FAERS Safety Report 6090175-3 (Version None)
Quarter: 2009Q1

REPORT INFORMATION
  Report Type: 
  Country: None (occurrence: None)
  Receive Date: 20090220
  Receipt Date: 20090210
  Transmission Date: 20090719
  Serious: Yes (Hospitalization)
  Sender: FDA-Public Use
  Company Number: GXKR2009US01793

PATIENT
  Age: 47 Year
  Sex: Male

DRUGS (6)
  1. FAMOTIDINE [Suspect]
  2. MORPHINE [Concomitant]
  3. CEFOXITIN (CEFOXITIN) [Concomitant]
  4. FENTANYL-100 [Concomitant]
  5. PROPOFOL [Concomitant]
  6. VECURONIUM BROMIDE [Concomitant]

REACTIONS (4)
  - DRUG CLEARANCE DECREASED [None]
  - HEPATITIS ACUTE [None]
  - RENAL IMPAIRMENT [None]
  - RENAL INJURY [None]
